FAERS Safety Report 9871533 (Version 16)
Quarter: 2015Q4

REPORT INFORMATION
  Report Type: Report from Study
  Country: US (occurrence: US)
  Receive Date: 20140205
  Receipt Date: 20151113
  Transmission Date: 20160305
  Serious: Yes (Hospitalization, Other)
  Sender: FDA-Public Use
  Company Number: US-ALEXION-A201400274

PATIENT
  Age: 23 Year
  Sex: Female

DRUGS (9)
  1. PROTONIX [Concomitant]
     Active Substance: PANTOPRAZOLE SODIUM
     Indication: PRODUCT USED FOR UNKNOWN INDICATION
     Dosage: 40 MG, QD
     Route: 065
     Dates: start: 20130422
  2. RISPERDAL [Concomitant]
     Active Substance: RISPERIDONE
     Indication: PSYCHOTIC DISORDER
     Dosage: UNK
     Route: 065
     Dates: start: 20140501
  3. CLINDAMYCIN [Concomitant]
     Active Substance: CLINDAMYCIN\CLINDAMYCIN PHOSPHATE
     Indication: PRODUCT USED FOR UNKNOWN INDICATION
     Dosage: 600 MG, TID
     Route: 042
     Dates: start: 20130422
  4. ULTRAM [Concomitant]
     Active Substance: TRAMADOL HYDROCHLORIDE
     Indication: PAIN
     Dosage: 50 MG, BID
     Route: 065
     Dates: start: 20130422
  5. SOLIRIS [Suspect]
     Active Substance: ECULIZUMAB
     Indication: HAEMOLYTIC URAEMIC SYNDROME
     Dosage: 1200 MG, Q2W
     Route: 042
     Dates: start: 20130411
  6. ZYPREXA [Concomitant]
     Active Substance: OLANZAPINE
     Indication: PSYCHOTIC DISORDER
     Dosage: UNK
     Route: 065
     Dates: start: 20140501
  7. CEFEPIME [Concomitant]
     Active Substance: CEFEPIME HYDROCHLORIDE
     Indication: ANTIBIOTIC THERAPY
     Dosage: 1, DF Q 12HOURS
     Route: 065
     Dates: start: 20130422
  8. NIFEDIPINE. [Concomitant]
     Active Substance: NIFEDIPINE
     Indication: HYPERTENSION
     Dosage: 30 MG, QD
     Route: 065
     Dates: start: 20130422
  9. LABETALOL [Concomitant]
     Active Substance: LABETALOL\LABETALOL HYDROCHLORIDE
     Indication: HYPERTENSION
     Dosage: 100 MG, BID
     Route: 065
     Dates: start: 20130422

REACTIONS (26)
  - Thrombosis in device [Not Recovered/Not Resolved]
  - Blood pressure increased [Recovering/Resolving]
  - Cystitis [Recovered/Resolved]
  - Amnesia [Not Recovered/Not Resolved]
  - Arthralgia [Not Recovered/Not Resolved]
  - Back pain [Unknown]
  - Urinary tract infection [Unknown]
  - Depressed mood [Recovering/Resolving]
  - Pancreatitis [Unknown]
  - Chest pain [Not Recovered/Not Resolved]
  - Constipation [Unknown]
  - Blood creatinine increased [Unknown]
  - Vomiting [Not Recovered/Not Resolved]
  - Kidney infection [Recovering/Resolving]
  - Vitamin B1 decreased [Unknown]
  - Streptococcus test [Unknown]
  - Memory impairment [Unknown]
  - Cholelithiasis [Unknown]
  - Nausea [Not Recovered/Not Resolved]
  - Frustration [Unknown]
  - Viral infection [Unknown]
  - Arthralgia [Unknown]
  - Upper respiratory tract infection [Unknown]
  - Bone pain [Not Recovered/Not Resolved]
  - Blood pressure abnormal [Unknown]
  - Headache [Unknown]

NARRATIVE: CASE EVENT DATE: 20140106
